FAERS Safety Report 13001958 (Version 1)
Quarter: 2016Q4

REPORT INFORMATION
  Report Type: Spontaneous
  Country: JP (occurrence: JP)
  Receive Date: 20161206
  Receipt Date: 20161206
  Transmission Date: 20170207
  Serious: Yes (Other)
  Sender: FDA-Public Use
  Company Number: JP-PFIZER INC-2016556892

PATIENT
  Age: 5 Decade
  Sex: Female

DRUGS (6)
  1. REFLEX [Concomitant]
     Active Substance: MIRTAZAPINE
     Dosage: UNK
  2. EFFEXOR [Suspect]
     Active Substance: VENLAFAXINE HYDROCHLORIDE
     Dosage: 37.5 MG, DAILY
     Route: 048
     Dates: start: 20161101, end: 201611
  3. EFFEXOR [Suspect]
     Active Substance: VENLAFAXINE HYDROCHLORIDE
     Dosage: 75 MG, DAILY
     Route: 048
     Dates: start: 20161115, end: 20161129
  4. DEPAS [Concomitant]
     Active Substance: ETIZOLAM
     Dosage: UNK
  5. LEXOTAN [Concomitant]
     Active Substance: BROMAZEPAM
     Dosage: UNK
  6. WINTERMIN [Concomitant]
     Active Substance: PROMAZINE
     Dosage: UNK

REACTIONS (2)
  - Angina pectoris [Unknown]
  - Chest pain [Unknown]

NARRATIVE: CASE EVENT DATE: 201611
